FAERS Safety Report 4631629-3 (Version None)
Quarter: 2005Q2

REPORT INFORMATION
  Report Type: 
  Country: None (occurrence: None)
  Receive Date: 20050407
  Receipt Date: 20050401
  Transmission Date: 20051028
  Serious: Yes (Hospitalization)
  Sender: FDA-Public Use
  Company Number: STA-AE-05-MTX-007

PATIENT
  Age: 41 Year
  Sex: Female

DRUGS (23)
  1. METHOTREXATE [Suspect]
     Indication: RHEUMATOID ARTHRITIS
     Dosage: 5 MG - 1XW - ORAL
     Route: 048
     Dates: start: 20001201, end: 20040423
  2. METHOTREXATE [Suspect]
     Indication: RHEUMATOID ARTHRITIS
     Dosage: 1XW - ORAL
     Route: 048
     Dates: start: 20040423, end: 20040929
  3. PREDNISOLONE SODIUM SUCCINATE INJ [Concomitant]
     Route: 048
  4. MOSAPRIDE CITRATE [Concomitant]
  5. TRIAMCINOLONE [Concomitant]
  6. IBUPROFEN [Concomitant]
  7. KETOPROFEN [Concomitant]
  8. FOLIC ACID [Concomitant]
  9. CHLORPHENIRAMINE MALEATE [Concomitant]
  10. TEPRENONE [Concomitant]
  11. SENNA LEAF [Concomitant]
  12. RANITIDINE HYDROCHLORIDE [Concomitant]
  13. CLARITHROMYCIN [Concomitant]
  14. MAGNESIUM OXIDE [Concomitant]
  15. METOCLOPRAMIDE [Concomitant]
  16. FAMOTIDINE [Concomitant]
  17. GLUCOSE/POTASSIUM CHLORIDE/SODIUM CHLORIDE/SODIUM LACTATE [Concomitant]
  18. AMINO ACIDS/CARBOHYDRATES/ELECTROLYTES [Concomitant]
  19. CYANOCOBALAMINE/PYRIDOXINE HYDROCHLORIDE/THIAMINE DISULFIDE [Concomitant]
  20. GLYCERIN [Concomitant]
  21. LOXOPROFEN SODIUM [Concomitant]
  22. ... [Concomitant]
     Indication: RHEUMATOID ARTHRITIS
     Dosage: QD ORAL
     Route: 048
     Dates: start: 20040423, end: 20040924
  23. INFLIXIMAB [Suspect]
     Dosage: IV
     Route: 042
     Dates: start: 20040423, end: 20040929

REACTIONS (4)
  - ABDOMINAL PAIN UPPER [None]
  - ENTERITIS INFECTIOUS [None]
  - FLATULENCE [None]
  - HEADACHE [None]
